FAERS Safety Report 10110879 (Version 1)
Quarter: 2014Q2

REPORT INFORMATION
  Report Type: Spontaneous
  Country: US (occurrence: US)
  Receive Date: 20140425
  Receipt Date: 20140425
  Transmission Date: 20141212
  Serious: Yes (Other)
  Sender: FDA-Public Use
  Company Number: US-JNJFOC-20140409617

PATIENT
  Age: 61 Year
  Sex: Female

DRUGS (9)
  1. DURAGESIC [Suspect]
     Indication: PRODUCT USED FOR UNKNOWN INDICATION
     Route: 062
     Dates: end: 201401
  2. DURAGESIC [Suspect]
     Indication: PRODUCT USED FOR UNKNOWN INDICATION
     Route: 062
     Dates: start: 2014, end: 201403
  3. DURAGESIC [Suspect]
     Indication: PRODUCT USED FOR UNKNOWN INDICATION
     Route: 062
     Dates: start: 2014, end: 2014
  4. DURAGESIC [Suspect]
     Indication: PRODUCT USED FOR UNKNOWN INDICATION
     Route: 062
     Dates: start: 2014, end: 2014
  5. SYNTHROID [Concomitant]
     Indication: BASEDOW^S DISEASE
     Route: 048
  6. PREMARIN [Concomitant]
     Route: 048
  7. MUCINEX [Concomitant]
     Indication: CHRONIC OBSTRUCTIVE PULMONARY DISEASE
     Route: 048
  8. ZYRTEC D [Concomitant]
     Indication: MULTIPLE ALLERGIES
     Route: 048
  9. VALIUM [Concomitant]
     Indication: MUSCLE SPASMS
     Dosage: 1 IN VAGINA 1 IN RECTUM
     Route: 048

REACTIONS (12)
  - Abnormal loss of weight [Not Recovered/Not Resolved]
  - Pain [Not Recovered/Not Resolved]
  - Surgery [Unknown]
  - Myocardial infarction [Unknown]
  - Frustration [Not Recovered/Not Resolved]
  - Blood pressure abnormal [Unknown]
  - Mental impairment [Not Recovered/Not Resolved]
  - Pulse abnormal [Unknown]
  - Malaise [Not Recovered/Not Resolved]
  - Hyperhidrosis [Not Recovered/Not Resolved]
  - Diarrhoea [Not Recovered/Not Resolved]
  - Eating disorder [Not Recovered/Not Resolved]
